FAERS Safety Report 9638267 (Version 2)
Quarter: 2014Q1

REPORT INFORMATION
  Report Type: Spontaneous
  Country: US (occurrence: US)
  Receive Date: 20131022
  Receipt Date: 20140210
  Transmission Date: 20141002
  Serious: Yes (Other)
  Sender: FDA-Public Use
  Company Number: US-AMGEN-USASP2013074028

PATIENT
  Age: 58 Year
  Sex: Male

DRUGS (1)
  1. ENBREL [Suspect]
     Indication: ANKYLOSING SPONDYLITIS
     Dosage: 50 MG, WEEKLY
     Route: 065
     Dates: start: 20040701

REACTIONS (10)
  - Osteoarthritis [Not Recovered/Not Resolved]
  - Hernia [Recovered/Resolved]
  - Polyp [Recovered/Resolved]
  - Pulmonary mass [Not Recovered/Not Resolved]
  - Groin pain [Recovered/Resolved]
  - Chronic obstructive pulmonary disease [Not Recovered/Not Resolved]
  - Arthralgia [Not Recovered/Not Resolved]
  - Memory impairment [Not Recovered/Not Resolved]
  - Abulia [Not Recovered/Not Resolved]
  - Emphysema [Not Recovered/Not Resolved]
